FAERS Safety Report 7972659-3 (Version None)
Quarter: 2011Q4

REPORT INFORMATION
  Report Type: 
  Country: None (occurrence: None)
  Receive Date: 20111213
  Receipt Date: 20111201
  Transmission Date: 20120403
  Serious: Yes (Disabling)
  Sender: FDA-Public Use
  Company Number: GB-RANBAXY-2011R1-50995

PATIENT
  Age: 14 Year
  Sex: Male
  Weight: 65 kg

DRUGS (2)
  1. RISPERIDONE [Suspect]
     Indication: ANXIETY
  2. RISPERIDONE [Suspect]
     Indication: AGGRESSION
     Dosage: 1.1 MG, QD
     Route: 048
     Dates: end: 20110321

REACTIONS (1)
  - GROWTH RETARDATION [None]
